FAERS Safety Report 20199441 (Version 1)
Quarter: 2021Q4

REPORT INFORMATION
  Report Type: Spontaneous
  Country: US (occurrence: US)
  Receive Date: 20211217
  Receipt Date: 20211217
  Transmission Date: 20220303
  Serious: No
  Sender: FDA-Public Use
  Company Number: US-PACIRA-2021000187

PATIENT
  Age: 60 Year
  Sex: Female
  Weight: 55 kg

DRUGS (1)
  1. EXPAREL [Suspect]
     Active Substance: BUPIVACAINE
     Dosage: 20 ML VIALS (2 VIALS USED)
     Route: 065

REACTIONS (3)
  - Extra dose administered [Unknown]
  - Overdose [Unknown]
  - Off label use [Unknown]
